FAERS Safety Report 22133782 (Version 1)
Quarter: 2023Q1

REPORT INFORMATION
  Report Type: Spontaneous
  Country: US (occurrence: US)
  Receive Date: 20230324
  Receipt Date: 20230324
  Transmission Date: 20230417
  Serious: No
  Sender: FDA-Public Use
  Company Number: US-ELI_LILLY_AND_COMPANY-US202303011799

PATIENT
  Age: 50 Year
  Sex: Male

DRUGS (2)
  1. TALTZ [Suspect]
     Active Substance: IXEKIZUMAB
     Indication: Psoriatic arthropathy
     Dosage: 80 MG, UNKNOWN
     Route: 058
     Dates: start: 202212
  2. IBUPROFEN [Concomitant]
     Active Substance: IBUPROFEN
     Indication: Psoriatic arthropathy
     Dosage: 600 MG, UNKNOWN
     Route: 065

REACTIONS (1)
  - Accidental underdose [Unknown]

NARRATIVE: CASE EVENT DATE: 20230318
